FAERS Safety Report 25602996 (Version 1)
Quarter: 2025Q3

REPORT INFORMATION
  Report Type: Spontaneous
  Country: US (occurrence: US)
  Receive Date: 20250724
  Receipt Date: 20250724
  Transmission Date: 20251020
  Serious: No
  Sender: GALPHARM INTERNATIONAL
  Company Number: US-PERRIGO-24US008136

PATIENT
  Sex: Female

DRUGS (4)
  1. MOTRIN IB [Suspect]
     Active Substance: IBUPROFEN
     Indication: Headache
     Dosage: 200 MG, BID
     Route: 048
     Dates: start: 2024, end: 2024
  2. MOTRIN IB [Suspect]
     Active Substance: IBUPROFEN
     Dosage: 200 MG, BID
     Route: 048
     Dates: start: 2024, end: 2024
  3. MOTRIN IB [Suspect]
     Active Substance: IBUPROFEN
     Dosage: 200 MG, BID
     Route: 048
     Dates: start: 2024, end: 2024
  4. MOTRIN IB [Suspect]
     Active Substance: IBUPROFEN
     Dosage: 200 MG, BID
     Route: 048
     Dates: start: 2024

REACTIONS (2)
  - Malaise [Unknown]
  - Dizziness [Unknown]

NARRATIVE: CASE EVENT DATE: 20240101
